FAERS Safety Report 5379569-9 (Version None)
Quarter: 2007Q3

REPORT INFORMATION
  Report Type: 
  Country: None (occurrence: None)
  Receive Date: 20070703
  Receipt Date: 20070622
  Transmission Date: 20080115
  Serious: Yes (Hospitalization)
  Sender: FDA-Public Use
  Company Number: 157918ISR

PATIENT
  Age: 44 Year
  Sex: Female

DRUGS (1)
  1. MIRTAZAPINE [Suspect]
     Dosage: 1 DF ??

REACTIONS (3)
  - HYDRONEPHROSIS [None]
  - URINARY RETENTION [None]
  - URINARY TRACT INFECTION [None]
